FAERS Safety Report 17377096 (Version 3)
Quarter: 2020Q3

REPORT INFORMATION
  Report Type: Spontaneous
  Country: US (occurrence: US)
  Receive Date: 20200206
  Receipt Date: 20200717
  Transmission Date: 20201102
  Serious: No
  Sender: FDA-Public Use
  Company Number: US-PFIZER INC-2020048336

PATIENT
  Age: 65 Year
  Sex: Female
  Weight: 100 kg

DRUGS (23)
  1. XELJANZ [Suspect]
     Active Substance: TOFACITINIB CITRATE
     Indication: PSORIATIC ARTHROPATHY
     Dosage: 5 MG, 2X/DAY
     Dates: start: 2019
  2. LEVOTHYROXINE [LEVOTHYROXINE SODIUM] [Concomitant]
     Active Substance: LEVOTHYROXINE SODIUM
     Dosage: 112 MG, 1X/DAY, (1 TAB MORNING)
     Dates: start: 2010
  3. ATORVASTATIN [Concomitant]
     Active Substance: ATORVASTATIN
     Dosage: 80 MG, 1X/DAY
     Dates: start: 2010
  4. CYCLOBENZAPRINE [CYCLOBENZAPRINE HYDROCHLORIDE] [Concomitant]
     Active Substance: CYCLOBENZAPRINE HYDROCHLORIDE
     Indication: PSORIATIC ARTHROPATHY
     Dosage: 20 MG, 1X/DAY, (10 MG 2 TABS AT BEDTIME)
  5. ASPIRIN [ACETYLSALICYLIC ACID] [Concomitant]
     Active Substance: ASPIRIN
     Dosage: 81 MG, DAILY
  6. LEFLUNOMIDE. [Concomitant]
     Active Substance: LEFLUNOMIDE
     Indication: PSORIASIS
  7. FLUOXETINE [Concomitant]
     Active Substance: FLUOXETINE HYDROCHLORIDE
     Indication: OBSESSIVE-COMPULSIVE DISORDER
     Dosage: 40 MG, 1X/DAY
     Dates: start: 2015
  8. HYDROXYZINE [HYDROXYZINE HYDROCHLORIDE] [Concomitant]
     Active Substance: HYDROXYZINE HYDROCHLORIDE
     Indication: PSORIASIS
  9. FIBERCON [Concomitant]
     Active Substance: CALCIUM POLYCARBOPHIL
     Dosage: UNK, AS NEEDED
  10. HYDROCHLOROTHIAZIDE. [Concomitant]
     Active Substance: HYDROCHLOROTHIAZIDE
     Indication: BLOOD PRESSURE ABNORMAL
     Dosage: 0.5 DF, DAILY
     Dates: start: 2010
  11. HYDROXYZINE [HYDROXYZINE HYDROCHLORIDE] [Concomitant]
     Active Substance: HYDROXYZINE HYDROCHLORIDE
     Indication: PSORIATIC ARTHROPATHY
     Dosage: 25 MG, AS NEEDED, (25MG 1 TAB 3XDAY AS NEEDED)
  12. XELJANZ [Suspect]
     Active Substance: TOFACITINIB CITRATE
     Indication: PSORIASIS
     Dosage: UNK, 2X/DAY
     Dates: end: 201911
  13. HUMERA [Concomitant]
     Active Substance: ADALIMUMAB
     Indication: PSORIATIC ARTHROPATHY
     Dosage: UNK
  14. SULFASALAZINE (ENTERIC COATED) [Concomitant]
     Active Substance: SULFASALAZINE
     Indication: PSORIATIC ARTHROPATHY
     Dosage: 1500 MG, 2X/DAY, (500MG 3 TABS 2XDAY)
  15. LEFLUNOMIDE. [Concomitant]
     Active Substance: LEFLUNOMIDE
     Indication: PSORIATIC ARTHROPATHY
     Dosage: 20 MG (1ML), 1X/DAY
  16. PREDNISONE [PREDNISONE ACETATE] [Concomitant]
     Active Substance: PREDNISONE ACETATE
     Indication: PAIN
     Dosage: 5 MG, AS NEEDED
  17. VITAMIN D3 [Concomitant]
     Active Substance: CHOLECALCIFEROL
     Dosage: 50 UG, DAILY
  18. TRAZODONE [Concomitant]
     Active Substance: TRAZODONE HYDROCHLORIDE
     Indication: SLEEP DISORDER
     Dosage: 100 MG, 1X/DAY, (1 PER NITE)
     Dates: start: 2017
  19. CYCLOBENZAPRINE [CYCLOBENZAPRINE HYDROCHLORIDE] [Concomitant]
     Active Substance: CYCLOBENZAPRINE HYDROCHLORIDE
     Indication: PSORIASIS
  20. SULFASALAZINE (ENTERIC COATED) [Concomitant]
     Active Substance: SULFASALAZINE
     Indication: PSORIASIS
  21. OMEPRAZOLE [OMEPRAZOLE SODIUM] [Concomitant]
     Active Substance: OMEPRAZOLE SODIUM
     Dosage: 20 MG, 2X/DAY
  22. CALCIUM CARBONATE. [Concomitant]
     Active Substance: CALCIUM CARBONATE
     Dosage: 300 MG, AS NEEDED
  23. HUMERA [Concomitant]
     Active Substance: ADALIMUMAB
     Indication: PSORIASIS

REACTIONS (3)
  - Pain in extremity [Not Recovered/Not Resolved]
  - Therapeutic response unexpected [Unknown]
  - Osteoarthritis [Not Recovered/Not Resolved]

NARRATIVE: CASE EVENT DATE: 2018
